FAERS Safety Report 19543880 (Version 3)
Quarter: 2023Q1

REPORT INFORMATION
  Report Type: Report from Study
  Country: US (occurrence: US)
  Receive Date: 20210713
  Receipt Date: 20230206
  Transmission Date: 20230417
  Serious: Yes (Other)
  Sender: FDA-Public Use
  Company Number: US-GW PHARMA-202107USGW03350

PATIENT
  Sex: Male
  Weight: 122 kg

DRUGS (2)
  1. EPIDIOLEX [Suspect]
     Active Substance: CANNABIDIOL
     Indication: Lennox-Gastaut syndrome
     Dosage: 18.45 MG/KG/DAY, 1130 MILLIGRAM, BID
     Route: 048
     Dates: start: 201903
  2. EPIDIOLEX [Suspect]
     Active Substance: CANNABIDIOL
     Dosage: 11.3 MILLILITER, BID
     Route: 048
     Dates: start: 201903

REACTIONS (2)
  - Seizure [Unknown]
  - Product administration interrupted [Unknown]
